FAERS Safety Report 6537989-0 (Version None)
Quarter: 2010Q1

REPORT INFORMATION
  Report Type: 
  Country: None (occurrence: None)
  Receive Date: 20100112
  Receipt Date: 20100112
  Transmission Date: 20100710
  Serious: Yes (Hospitalization)
  Sender: FDA-Public Use
  Company Number: None

PATIENT
  Age: 21 Year
  Sex: Female
  Weight: 80.2867 kg

DRUGS (1)
  1. MIRENA [Suspect]
     Dosage: INTRA-UTERINE
     Route: 015
     Dates: start: 20080701, end: 20100109

REACTIONS (8)
  - ALOPECIA [None]
  - DEPRESSION [None]
  - FATIGUE [None]
  - HAEMORRHAGE [None]
  - LOSS OF LIBIDO [None]
  - PANIC ATTACK [None]
  - TREMOR [None]
  - WEIGHT LOSS POOR [None]
